FAERS Safety Report 5334615-3 (Version None)
Quarter: 2007Q2

REPORT INFORMATION
  Report Type: 
  Country: None (occurrence: None)
  Receive Date: 20070525
  Receipt Date: 20070523
  Transmission Date: 20071010
  Serious: Yes (Other)
  Sender: FDA-Public Use
  Company Number: A0576055A

PATIENT
  Sex: Female

DRUGS (7)
  1. AVANDIA [Suspect]
     Dosage: 4MG PER DAY
     Route: 048
  2. HYDROCHLOROTHIAZIDE [Concomitant]
  3. MICRO-K [Concomitant]
  4. BETAXOLOL [Concomitant]
  5. PILOCARPINE [Concomitant]
  6. ALLEGRA D 24 HOUR [Concomitant]
  7. FOSAMAX [Concomitant]

REACTIONS (4)
  - CARDIAC DISORDER [None]
  - GLAUCOMA [None]
  - HYPOAESTHESIA [None]
  - OEDEMA PERIPHERAL [None]
